FAERS Safety Report 18795291 (Version 1)
Quarter: 2021Q1

REPORT INFORMATION
  Report Type: Report from Study
  Country: US (occurrence: US)
  Receive Date: 20210127
  Receipt Date: 20210127
  Transmission Date: 20210419
  Serious: Yes (Hospitalization)
  Sender: FDA-Public Use
  Company Number: US-JNJFOC-20201201112

PATIENT
  Age: 74 Year
  Sex: Male
  Weight: 72.64 kg

DRUGS (3)
  1. ADEMPAS [Concomitant]
     Active Substance: RIOCIGUAT
  2. REMODULIN [Concomitant]
     Active Substance: TREPROSTINIL
  3. MACITENTAN [Suspect]
     Active Substance: MACITENTAN
     Indication: PULMONARY HYPERTENSION
     Route: 048

REACTIONS (3)
  - Diarrhoea [Unknown]
  - Epistaxis [Unknown]
  - Lung neoplasm malignant [Unknown]

NARRATIVE: CASE EVENT DATE: 20201117
